FAERS Safety Report 4664827-3 (Version None)
Quarter: 2005Q2

REPORT INFORMATION
  Report Type: 
  Country: None (occurrence: None)
  Receive Date: 20050517
  Receipt Date: 20050517
  Transmission Date: 20051028
  Serious: Yes (Hospitalization)
  Sender: FDA-Public Use
  Company Number: None

PATIENT
  Age: 73 Year
  Sex: Male

DRUGS (2)
  1. MORPHINE [Suspect]
     Indication: CANCER PAIN
     Dosage: 90 MG Q 12 H
     Dates: start: 20040401
  2. OXYCODONE HCL [Suspect]
     Indication: CANCER PAIN
     Dosage: 5-10 MG Q 4 PRN
     Dates: start: 20040101

REACTIONS (1)
  - CONSTIPATION [None]
